FAERS Safety Report 6313728-3 (Version None)
Quarter: 2009Q3

REPORT INFORMATION
  Report Type: 
  Country: None (occurrence: None)
  Receive Date: 20090817
  Receipt Date: 20090817
  Transmission Date: 20100115
  Serious: No
  Sender: FDA-Public Use
  Company Number: None

PATIENT
  Age: 63 Year
  Sex: Male
  Weight: 85.73 kg

DRUGS (1)
  1. MORPHINE [Suspect]
     Indication: PAIN
     Dosage: 60 MG BID PO
     Route: 048
     Dates: start: 20090508, end: 20090812

REACTIONS (2)
  - DYSPEPSIA [None]
  - NAUSEA [None]
